FAERS Safety Report 6119967-9 (Version None)
Quarter: 2009Q1

REPORT INFORMATION
  Report Type: 
  Country: None (occurrence: None)
  Receive Date: 20090316
  Receipt Date: 20090309
  Transmission Date: 20090719
  Serious: Yes (Other)
  Sender: FDA-Public Use
  Company Number: US-GILEAD-2009-0020502

PATIENT
  Sex: Female

DRUGS (8)
  1. LETAIRIS [Suspect]
     Indication: RESPIRATORY DISORDER
     Route: 048
     Dates: start: 20081229
  2. ALBUTEROL [Concomitant]
  3. LEVOTHYROXINE [Concomitant]
  4. PREDNISONE [Concomitant]
  5. DOXYCYCLINE [Concomitant]
  6. ACETYLCHOLINE CHLORIDE [Concomitant]
  7. GLUCOSAMINE [Concomitant]
  8. OMEPRAZOLE [Concomitant]

REACTIONS (2)
  - MUSCULOSKELETAL PAIN [None]
  - PETECHIAE [None]
